FAERS Safety Report 23824248 (Version 2)
Quarter: 2024Q2

REPORT INFORMATION
  Report Type: Spontaneous
  Country: US (occurrence: US)
  Receive Date: 20240507
  Receipt Date: 20240513
  Transmission Date: 20240716
  Serious: No
  Sender: FDA-Public Use
  Company Number: US-ABBVIE-5747435

PATIENT
  Age: 46 Year
  Weight: 68 kg

DRUGS (6)
  1. NAMENDA [Suspect]
     Active Substance: MEMANTINE HYDROCHLORIDE
     Indication: Cluster headache
     Dosage: FORM STRENGTH: 10 MILLIGRAM
     Route: 048
  2. NAMENDA [Suspect]
     Active Substance: MEMANTINE HYDROCHLORIDE
     Indication: Cluster headache
     Dosage: FORM STRENGTH- MEMANTINE HCL 2MG/ML SOL
     Route: 065
  3. NAMENDA [Suspect]
     Active Substance: MEMANTINE HYDROCHLORIDE
     Indication: Cluster headache
     Dosage: FORM STRENGTH: 10 MILLIGRAM
     Route: 048
  4. NAMENDA [Suspect]
     Active Substance: MEMANTINE HYDROCHLORIDE
     Indication: Cluster headache
     Dosage: FORM STRENGTH: 5 MILLIGRAM
     Route: 048
     Dates: start: 201501
  5. AMANTADINE [Concomitant]
     Active Substance: AMANTADINE
     Indication: Product used for unknown indication
  6. MEMANTINE [Suspect]
     Active Substance: MEMANTINE
     Indication: Product used for unknown indication
     Route: 065
     Dates: start: 202012, end: 202101

REACTIONS (3)
  - Mental disorder [Unknown]
  - Off label use [Recovering/Resolving]
  - Cognitive disorder [Recovered/Resolved]

NARRATIVE: CASE EVENT DATE: 20190401
